FAERS Safety Report 20957999 (Version 1)
Quarter: 2022Q2

REPORT INFORMATION
  Report Type: Spontaneous
  Country: US (occurrence: None)
  Receive Date: 20220614
  Receipt Date: 20220614
  Transmission Date: 20220721
  Serious: No
  Sender: FDA-Public Use
  Company Number: None

PATIENT
  Age: 66 Year
  Sex: Male
  Weight: 88.65 kg

DRUGS (11)
  1. PAXLOVID [Suspect]
     Active Substance: NIRMATRELVIR\RITONAVIR
     Indication: COVID-19
     Dosage: FREQUENCY : TWICE A DAY;?
  2. PRAVASTATIN [Concomitant]
     Active Substance: PRAVASTATIN
  3. LEVOTHYROXINE [Concomitant]
     Active Substance: LEVOTHYROXINE
  4. Vitamins B complex [Concomitant]
  5. C [Concomitant]
  6. VITAMIN D3 [Concomitant]
     Active Substance: CHOLECALCIFEROL
  7. SODIUM CHLORIDE [Concomitant]
     Active Substance: SODIUM CHLORIDE
  8. MAGNESIUM [Concomitant]
     Active Substance: MAGNESIUM
  9. ZINC [Concomitant]
     Active Substance: ZINC
  10. PRILOSEC [Concomitant]
     Active Substance: OMEPRAZOLE MAGNESIUM
  11. ^Blood Builder^ [Concomitant]

REACTIONS (2)
  - Dysgeusia [None]
  - Taste disorder [None]

NARRATIVE: CASE EVENT DATE: 20220611
